FAERS Safety Report 8935431 (Version 1)
Quarter: 2012Q4

REPORT INFORMATION
  Report Type: Spontaneous
  Country: US (occurrence: None)
  Receive Date: 20121128
  Receipt Date: 20121128
  Transmission Date: 20130627
  Serious: Yes (Hospitalization)
  Sender: FDA-Public Use
  Company Number: None

PATIENT
  Age: 53 Year
  Sex: Male
  Weight: 110.6 kg

DRUGS (1)
  1. METFORMIN [Suspect]
     Dosage: 500 MG BID PO
     Route: 048
     Dates: start: 20120124, end: 20120630

REACTIONS (3)
  - Lactic acidosis [None]
  - Renal failure acute [None]
  - Dehydration [None]
